FAERS Safety Report 7166408-9 (Version None)
Quarter: 2010Q4

REPORT INFORMATION
  Report Type: 
  Country: None (occurrence: None)
  Receive Date: 20101203
  Receipt Date: 20101119
  Transmission Date: 20110411
  Serious: Yes (Other)
  Sender: FDA-Public Use
  Company Number: 201008041

PATIENT
  Age: 80 Year
  Sex: Male
  Weight: 74.3899 kg

DRUGS (1)
  1. XIAFLEX [Suspect]
     Indication: DUPUYTREN'S CONTRACTURE
     Dosage: 1 IN 1 D INTRALESIONAL
     Route: 026
     Dates: start: 20100721, end: 20100721

REACTIONS (3)
  - HAEMORRHAGE [None]
  - SKIN GRAFT [None]
  - SKIN LACERATION [None]
